FAERS Safety Report 11492053 (Version 1)
Quarter: 2015Q3

REPORT INFORMATION
  Report Type: Spontaneous
  Country: US (occurrence: None)
  Receive Date: 20150909
  Receipt Date: 20150909
  Transmission Date: 20151125
  Serious: Yes (Death)
  Sender: FDA-Public Use
  Company Number: US-ALSI-201500182

PATIENT
  Age: 6 Year

DRUGS (1)
  1. HELIUM. [Suspect]
     Active Substance: HELIUM
     Indication: GAS POISONING
     Route: 055
     Dates: start: 201508, end: 201508

REACTIONS (2)
  - Gas poisoning [None]
  - Overdose [None]

NARRATIVE: CASE EVENT DATE: 201508
